FAERS Safety Report 18050700 (Version 5)
Quarter: 2020Q3

REPORT INFORMATION
  Report Type: Report from Study
  Country: US (occurrence: US)
  Receive Date: 20200721
  Receipt Date: 20200917
  Transmission Date: 20201103
  Serious: Yes (Other)
  Sender: FDA-Public Use
  Company Number: US-GLAXOSMITHKLINE-2019-TSO02490-US

PATIENT
  Age: 71 Year
  Sex: Female

DRUGS (11)
  1. MELOXICAM. [Concomitant]
     Active Substance: MELOXICAM
     Indication: PRODUCT USED FOR UNKNOWN INDICATION
     Dosage: UNK
  2. NIRAPARIB [Suspect]
     Active Substance: NIRAPARIB
     Dosage: 100 MG, PM WITHOUT FOOD
     Route: 048
  3. NIRAPARIB [Suspect]
     Active Substance: NIRAPARIB
     Dosage: 200 MG, QD
     Dates: start: 20200910
  4. NIRAPARIB [Suspect]
     Active Substance: NIRAPARIB
     Indication: OVARIAN CANCER
     Dosage: 200 MG, Q HS
     Route: 048
     Dates: start: 20190701, end: 20190805
  5. NIRAPARIB [Suspect]
     Active Substance: NIRAPARIB
     Dosage: 100 MG, Z (ALTERNATING 100MG ON ONE DAY THEN NEXT DAY)
  6. NIRAPARIB [Suspect]
     Active Substance: NIRAPARIB
     Dosage: 100 MG, QD
     Dates: start: 20190225
  7. FAMOTIDINE. [Concomitant]
     Active Substance: FAMOTIDINE
     Indication: PRODUCT USED FOR UNKNOWN INDICATION
     Dosage: 20 MG, QD
  8. NIRAPARIB [Suspect]
     Active Substance: NIRAPARIB
     Dosage: 100 MG (QHS)
  9. NIRAPARIB [Suspect]
     Active Substance: NIRAPARIB
     Dosage: 100 MG, QD
  10. NIRAPARIB [Suspect]
     Active Substance: NIRAPARIB
     Dosage: UNK UNK, Z (100MG ALTERNATING WITH 200 MG)
     Dates: start: 20200729
  11. NIRAPARIB [Suspect]
     Active Substance: NIRAPARIB
     Dosage: 100 MG, PM WITHOUT FOOD
     Route: 048
     Dates: start: 20190825

REACTIONS (23)
  - Constipation [Recovered/Resolved]
  - Off label use [Unknown]
  - Social problem [Unknown]
  - Fatigue [Not Recovered/Not Resolved]
  - Cough [Recovered/Resolved]
  - Chills [Unknown]
  - Dyspnoea [Unknown]
  - Product monitoring error [Unknown]
  - Inappropriate schedule of product administration [Unknown]
  - Loss of personal independence in daily activities [Recovering/Resolving]
  - Early satiety [Unknown]
  - Arthritis [Not Recovered/Not Resolved]
  - Blood pressure fluctuation [Unknown]
  - Blood pressure increased [Recovering/Resolving]
  - Back pain [Not Recovered/Not Resolved]
  - Anorectal discomfort [Recovered/Resolved]
  - Oropharyngeal pain [Unknown]
  - Malignant neoplasm progression [Unknown]
  - Asthenia [Not Recovered/Not Resolved]
  - Decreased appetite [Not Recovered/Not Resolved]
  - Carbohydrate antigen 125 increased [Not Recovered/Not Resolved]
  - Dyspnoea exertional [Recovering/Resolving]
  - Pyrexia [Unknown]

NARRATIVE: CASE EVENT DATE: 201907
